FAERS Safety Report 6574069-2 (Version None)
Quarter: 2010Q1

REPORT INFORMATION
  Report Type: 
  Country: None (occurrence: None)
  Receive Date: 20100208
  Receipt Date: 20100121
  Transmission Date: 20100710
  Serious: Yes (Other)
  Sender: FDA-Public Use
  Company Number: US-BAYER-200936242NA

PATIENT
  Age: 73 Year
  Sex: Male
  Weight: 96 kg

DRUGS (11)
  1. MAGNEVIST [Suspect]
     Indication: NUCLEAR MAGNETIC RESONANCE IMAGING
     Dates: start: 19990916, end: 19990916
  2. MAGNEVIST [Suspect]
     Dates: start: 19990917, end: 19990917
  3. OMNISCAN [Suspect]
     Indication: NUCLEAR MAGNETIC RESONANCE IMAGING
     Dates: start: 19890111, end: 19890111
  4. OMNISCAN [Suspect]
     Dates: start: 19990916, end: 19990916
  5. PLAVIX [Concomitant]
  6. METOPROLOL TARTRATE [Concomitant]
  7. AMLODIPINE [Concomitant]
  8. PLAVIX [Concomitant]
  9. ASPIRIN [Concomitant]
  10. CALCIUM CARBONATE [Concomitant]
  11. PREDNISONE [Concomitant]

REACTIONS (20)
  - BURNING SENSATION [None]
  - DEFORMITY [None]
  - HYPOAESTHESIA [None]
  - JOINT INJURY [None]
  - JOINT RANGE OF MOTION DECREASED [None]
  - MOBILITY DECREASED [None]
  - MUSCULAR WEAKNESS [None]
  - NEPHROGENIC SYSTEMIC FIBROSIS [None]
  - OEDEMA PERIPHERAL [None]
  - PAIN [None]
  - PAIN IN EXTREMITY [None]
  - PAIN OF SKIN [None]
  - PRURITUS [None]
  - PRURITUS GENERALISED [None]
  - SKIN DISCOLOURATION [None]
  - SKIN FIBROSIS [None]
  - SKIN LESION [None]
  - SKIN NODULE [None]
  - SKIN TIGHTNESS [None]
  - XEROSIS [None]
